FAERS Safety Report 4463529-6 (Version None)
Quarter: 2004Q3

REPORT INFORMATION
  Report Type: 
  Country: None (occurrence: None)
  Receive Date: 20040928
  Receipt Date: 20040922
  Transmission Date: 20050211
  Serious: Yes (Hospitalization)
  Sender: FDA-Public Use
  Company Number: 2004CG01891

PATIENT
  Age: 47 Year
  Sex: Female

DRUGS (6)
  1. MOPRAL [Suspect]
     Dosage: 20 MG DAILY PO
     Route: 048
     Dates: end: 20040801
  2. VANCOMYCIN [Suspect]
     Indication: POSTOPERATIVE INFECTION
     Dates: start: 20040622, end: 20040707
  3. VANCOMYCIN [Suspect]
     Indication: STAPHYLOCOCCAL INFECTION
     Dates: start: 20040622, end: 20040707
  4. VANCOMYCIN [Suspect]
     Indication: SUPERINFECTION
     Dates: start: 20040622, end: 20040707
  5. TRANXENE [Concomitant]
  6. ANAFRANIL [Concomitant]

REACTIONS (11)
  - BLOOD CREATININE INCREASED [None]
  - BLOOD UREA INCREASED [None]
  - CYTOLYTIC HEPATITIS [None]
  - DRUG RASH WITH EOSINOPHILIA AND SYSTEMIC SYMPTOMS [None]
  - FACE OEDEMA [None]
  - LEUKOCYTOSIS [None]
  - NEUTROPHIL COUNT INCREASED [None]
  - OEDEMA [None]
  - OEDEMA PERIPHERAL [None]
  - SUPERINFECTION [None]
  - TOXIC SKIN ERUPTION [None]
